FAERS Safety Report 19927345 (Version 1)
Quarter: 2021Q4

REPORT INFORMATION
  Report Type: Spontaneous
  Country: DZ (occurrence: DZ)
  Receive Date: 20211006
  Receipt Date: 20211006
  Transmission Date: 20220303
  Serious: Yes (Death, Other)
  Sender: FDA-Public Use
  Company Number: DZ-SA-SAC20211005001115

PATIENT
  Age: 8 Month
  Sex: Male
  Weight: 5 kg

DRUGS (1)
  1. MYOZYME [Suspect]
     Active Substance: ALGLUCOSIDASE ALFA
     Indication: Glycogen storage disease type II

REACTIONS (2)
  - Pneumonia [Fatal]
  - Respiratory distress [Fatal]
